FAERS Safety Report 6481411-X (Version None)
Quarter: 2009Q4

REPORT INFORMATION
  Report Type: 
  Country: None (occurrence: None)
  Receive Date: 20091203
  Receipt Date: 20091119
  Transmission Date: 20100525
  Serious: Yes (Life-Threatening)
  Sender: FDA-Public Use
  Company Number: 1000010503

PATIENT
  Age: 27 Year
  Sex: Male

DRUGS (3)
  1. CITALOPRAM HYDROBROMIDE [Suspect]
     Indication: DEPRESSION
     Dosage: 10 MG (10 MG,1 IN 1 D),ORAL
     Route: 048
     Dates: start: 20091106, end: 20091108
  2. TRUXAL (TABLETS) [Suspect]
     Indication: RESTLESSNESS
     Dosage: (25 MG),ORAL
     Route: 048
     Dates: start: 20091105, end: 20091108
  3. RISPERDAL [Suspect]
     Indication: PSYCHOTIC DISORDER
     Dosage: 2 MG (1 MG,2 IN 1 D),ORAL
     Route: 048
     Dates: start: 20091107, end: 20091108

REACTIONS (2)
  - ANAPHYLACTIC REACTION [None]
  - DRUG INTERACTION [None]
